FAERS Safety Report 8392319-7 (Version None)
Quarter: 2012Q2

REPORT INFORMATION
  Report Type: 
  Country: None (occurrence: None)
  Receive Date: 20120529
  Receipt Date: 20120516
  Transmission Date: 20120825
  Serious: Yes (Hospitalization)
  Sender: FDA-Public Use
  Company Number: JP-ELI_LILLY_AND_COMPANY-JP201204003639

PATIENT
  Age: 70 Year
  Sex: Male

DRUGS (3)
  1. FOLIC ACID [Concomitant]
  2. ALIMTA [Suspect]
     Indication: NON-SMALL CELL LUNG CANCER
     Dosage: UNK
     Route: 042
  3. VITAMIN B-12 [Concomitant]

REACTIONS (5)
  - PYREXIA [None]
  - NEUTROPHIL COUNT DECREASED [None]
  - HYPERSENSITIVITY [None]
  - C-REACTIVE PROTEIN INCREASED [None]
  - INFECTION [None]
